FAERS Safety Report 5526118-8 (Version None)
Quarter: 2007Q4

REPORT INFORMATION
  Report Type: 
  Country: None (occurrence: None)
  Receive Date: 20071120
  Receipt Date: 20071024
  Transmission Date: 20080405
  Serious: Yes (Hospitalization)
  Sender: FDA-Public Use
  Company Number: ENT 2007-0189

PATIENT
  Age: 62 Year

DRUGS (6)
  1. COMTAN [Suspect]
     Dosage: ORAL
     Route: 048
  2. MADOPAR [Concomitant]
  3. FP [Concomitant]
  4. SIFROL [Concomitant]
  5. FLOMOX [Concomitant]
  6. PL GRAN. [Concomitant]

REACTIONS (1)
  - DYSPNOEA [None]
